FAERS Safety Report 24007981 (Version 1)
Quarter: 2024Q2

REPORT INFORMATION
  Report Type: Spontaneous
  Country: JP (occurrence: JP)
  Receive Date: 20240625
  Receipt Date: 20240625
  Transmission Date: 20240716
  Serious: Yes (Hospitalization, Other)
  Sender: FDA-Public Use
  Company Number: JP-BRISTOL-MYERS SQUIBB COMPANY-2024-100529

PATIENT
  Age: 8 Decade
  Sex: Female
  Weight: 46.9 kg

DRUGS (24)
  1. REVLIMID [Suspect]
     Active Substance: LENALIDOMIDE
     Indication: Plasma cell myeloma
     Dates: start: 201506, end: 201510
  2. REVLIMID [Suspect]
     Active Substance: LENALIDOMIDE
     Dates: start: 201606, end: 201609
  3. REVLIMID [Suspect]
     Active Substance: LENALIDOMIDE
     Dates: start: 201611, end: 201705
  4. REVLIMID [Suspect]
     Active Substance: LENALIDOMIDE
     Dates: start: 201710
  5. REVLIMID [Suspect]
     Active Substance: LENALIDOMIDE
     Dates: start: 201908, end: 201909
  6. REVLIMID [Suspect]
     Active Substance: LENALIDOMIDE
     Dates: start: 202003, end: 202004
  7. REVLIMID [Suspect]
     Active Substance: LENALIDOMIDE
     Dates: start: 202008, end: 202009
  8. LENADEX [Suspect]
     Active Substance: DEXAMETHASONE ACETATE
     Indication: Plasma cell myeloma
     Dates: start: 201405
  9. LENADEX [Suspect]
     Active Substance: DEXAMETHASONE ACETATE
     Dates: start: 201506, end: 201510
  10. LENADEX [Suspect]
     Active Substance: DEXAMETHASONE ACETATE
     Dates: start: 201606, end: 201609
  11. LENADEX [Suspect]
     Active Substance: DEXAMETHASONE ACETATE
     Dates: start: 201710
  12. LENADEX [Suspect]
     Active Substance: DEXAMETHASONE ACETATE
     Dates: start: 201901
  13. LENADEX [Suspect]
     Active Substance: DEXAMETHASONE ACETATE
     Dates: start: 201908, end: 201909
  14. LENADEX [Suspect]
     Active Substance: DEXAMETHASONE ACETATE
     Dates: start: 202003
  15. LENADEX [Suspect]
     Active Substance: DEXAMETHASONE ACETATE
     Dates: start: 202008
  16. LENADEX [Suspect]
     Active Substance: DEXAMETHASONE ACETATE
     Dates: start: 202009
  17. LENADEX [Suspect]
     Active Substance: DEXAMETHASONE ACETATE
     Dates: start: 202011
  18. LENADEX [Suspect]
     Active Substance: DEXAMETHASONE ACETATE
     Dates: start: 202102
  19. LASIX [Concomitant]
     Active Substance: FUROSEMIDE
     Indication: Product used for unknown indication
  20. ROZEREM [Concomitant]
     Active Substance: RAMELTEON
     Indication: Product used for unknown indication
  21. RABEPRAZOLE SODIUM [Concomitant]
     Active Substance: RABEPRAZOLE SODIUM
     Indication: Product used for unknown indication
  22. VALSARTAN [Concomitant]
     Active Substance: VALSARTAN
     Indication: Product used for unknown indication
  23. CLOPIDOGREL [Concomitant]
     Active Substance: CLOPIDOGREL BISULFATE
     Indication: Product used for unknown indication
  24. SPIRONOLACTONE [Concomitant]
     Active Substance: SPIRONOLACTONE
     Indication: Product used for unknown indication

REACTIONS (17)
  - Cerebellar infarction [Unknown]
  - Cerebral infarction [Unknown]
  - Hypoaesthesia oral [Unknown]
  - Hypoaesthesia [Unknown]
  - Plasma cell myeloma [Unknown]
  - Arthralgia [Recovering/Resolving]
  - Pyrexia [Unknown]
  - Diarrhoea [Unknown]
  - Decreased appetite [Unknown]
  - Physical deconditioning [Unknown]
  - Dizziness [Unknown]
  - Stomatitis [Unknown]
  - Chest discomfort [Unknown]
  - Oedema [Unknown]
  - Melaena [Unknown]
  - Enterocolitis [Unknown]
  - Pain in extremity [Unknown]

NARRATIVE: CASE EVENT DATE: 20150901
